FAERS Safety Report 8425310-2 (Version None)
Quarter: 2012Q2

REPORT INFORMATION
  Report Type: 
  Country: None (occurrence: None)
  Receive Date: 20120611
  Receipt Date: 20120530
  Transmission Date: 20120825
  Serious: Yes (Other)
  Sender: FDA-Public Use
  Company Number: CA-JNJFOC-20120503106

PATIENT
  Sex: Male
  Weight: 85 kg

DRUGS (5)
  1. BENADRYL [Concomitant]
     Indication: PREMEDICATION
     Route: 065
  2. REMICADE [Suspect]
     Route: 042
     Dates: start: 20120530
  3. SOLU-CORTEF [Concomitant]
     Indication: PREMEDICATION
     Route: 065
  4. REMICADE [Suspect]
     Indication: COLITIS ULCERATIVE
     Route: 042
     Dates: start: 20110503
  5. CIPROFLOXACIN [Concomitant]
     Dosage: 7 DAYS
     Route: 065

REACTIONS (4)
  - DIABETES MELLITUS [None]
  - PRURITUS [None]
  - NEPHROLITHIASIS [None]
  - INFECTION [None]
